FAERS Safety Report 21294467 (Version 2)
Quarter: 2022Q3

REPORT INFORMATION
  Report Type: Spontaneous
  Country: US (occurrence: US)
  Receive Date: 20220905
  Receipt Date: 20220907
  Transmission Date: 20221027
  Serious: Yes (Hospitalization, Other)
  Sender: FDA-Public Use
  Company Number: US-HORIZON THERAPEUTICS-HZN-2022-006667

PATIENT

DRUGS (7)
  1. RAYOS [Suspect]
     Active Substance: PREDNISONE
     Indication: COVID-19 pneumonia
     Dosage: FIRST DOSE
     Route: 065
  2. RAYOS [Suspect]
     Active Substance: PREDNISONE
     Indication: Pneumothorax spontaneous
  3. DEXAMETHASONE [Suspect]
     Active Substance: DEXAMETHASONE
     Indication: COVID-19 pneumonia
     Route: 065
  4. BARICITINIB [Concomitant]
     Active Substance: BARICITINIB
     Indication: COVID-19 pneumonia
  5. LEVOFLOXACIN [Concomitant]
     Active Substance: LEVOFLOXACIN
     Indication: Pneumonia bacterial
  6. REMDESIVIR [Concomitant]
     Active Substance: REMDESIVIR
     Indication: COVID-19 pneumonia
  7. OXYGEN [Concomitant]
     Active Substance: OXYGEN
     Dosage: HIGH-FLOW NASAL CANNULA OXYGEN THERAPY

REACTIONS (2)
  - Pneumothorax spontaneous [Not Recovered/Not Resolved]
  - Off label use [Unknown]
